FAERS Safety Report 14079444 (Version 1)
Quarter: 2017Q4

REPORT INFORMATION
  Report Type: Report from Study
  Country: US (occurrence: US)
  Receive Date: 20171012
  Receipt Date: 20171012
  Transmission Date: 20180321
  Serious: Yes (Other)
  Sender: FDA-Public Use
  Company Number: US-CIPLA (EU) LIMITED-STD201411-003629

PATIENT

DRUGS (10)
  1. HUMANIZED ANTI-GD2 [Suspect]
     Active Substance: INVESTIGATIONAL PRODUCT
     Indication: NEUROBLASTOMA RECURRENT
     Dosage: UNK
  2. IL-2 [Suspect]
     Active Substance: ALDESLEUKIN
     Indication: NEUROBLASTOMA RECURRENT
     Dosage: 1 MILLION UNITS/M2, S.Q EVERY OTHER DAY FOR 6 DOSES
     Route: 058
  3. CYCLOPHOSPHAMIDE. [Suspect]
     Active Substance: CYCLOPHOSPHAMIDE
     Indication: NEUROBLASTOMA RECURRENT
     Dosage: 400 MG/M2, UNK
     Route: 042
  4. IRINOTECAN [Suspect]
     Active Substance: IRINOTECAN
     Indication: NEUROBLASTOMA RECURRENT
     Dosage: 50 MG/M2, ON DAYS 1 TO 5
     Route: 042
  5. DIPHENHYDRAMINE. [Concomitant]
     Active Substance: DIPHENHYDRAMINE
     Dosage: UNK
     Route: 065
  6. GM-CSF [Suspect]
     Active Substance: GRANULOCYTE-MACROPHAGE COLONY-STIMULATING FACTOR
     Indication: NEUROBLASTOMA RECURRENT
     Dosage: 250MCG/M2/DOSE
     Route: 058
  7. TOPOTECAN [Suspect]
     Active Substance: TOPOTECAN HYDROCHLORIDE
     Indication: NEUROBLASTOMA RECURRENT
     Dosage: 1.2 MG/M2, QD ON DAYS 1 TO 3
     Route: 042
  8. TEMOZOLOMIDE. [Suspect]
     Active Substance: TEMOZOLOMIDE
     Indication: NEUROBLASTOMA RECURRENT
     Dosage: 150 MG/M2, ON DAYS 1 TO 5
     Route: 048
  9. ACETAMINOPHEN. [Concomitant]
     Active Substance: ACETAMINOPHEN
     Route: 065
  10. PARENTALLY-DERIVED NK CELLS [Suspect]
     Active Substance: INVESTIGATIONAL PRODUCT
     Indication: NEUROBLASTOMA RECURRENT
     Dosage: UNK

REACTIONS (2)
  - Bone marrow failure [Unknown]
  - Neoplasm malignant [Unknown]
